FAERS Safety Report 11145973 (Version 2)
Quarter: 2015Q3

REPORT INFORMATION
  Report Type: Spontaneous
  Country: GB (occurrence: GB)
  Receive Date: 20150528
  Receipt Date: 20150811
  Transmission Date: 20151125
  Serious: Yes (Death, Life-Threatening, Other)
  Sender: FDA-Public Use
  Company Number: GB-GLAXOSMITHKLINE-GB2015071271

PATIENT
  Age: 35 Year
  Sex: Female
  Weight: 66 kg

DRUGS (7)
  1. METHOTREXATE [Concomitant]
     Active Substance: METHOTREXATE
  2. DEXAMETHASONE. [Concomitant]
     Active Substance: DEXAMETHASONE
  3. ETOPOSIDE. [Concomitant]
     Active Substance: ETOPOSIDE
  4. VINCRISTINE [Concomitant]
     Active Substance: VINCRISTINE
  5. DAUNORUBICIN [Concomitant]
     Active Substance: DAUNORUBICIN
  6. NELARABINE [Suspect]
     Active Substance: NELARABINE
     Indication: CHEMOTHERAPY
     Route: 042
     Dates: start: 20141208, end: 20141212
  7. CYCLOPHOSPHAMIDE. [Concomitant]
     Active Substance: CYCLOPHOSPHAMIDE

REACTIONS (9)
  - Neurotoxicity [Not Recovered/Not Resolved]
  - Back pain [Not Recovered/Not Resolved]
  - Febrile neutropenia [Not Recovered/Not Resolved]
  - Ataxia [Not Recovered/Not Resolved]
  - Respiratory failure [Fatal]
  - Peripheral sensory neuropathy [Not Recovered/Not Resolved]
  - Pain in extremity [Not Recovered/Not Resolved]
  - Pneumonia [Fatal]
  - Peripheral motor neuropathy [Not Recovered/Not Resolved]

NARRATIVE: CASE EVENT DATE: 20141213
